FAERS Safety Report 5467389-6 (Version None)
Quarter: 2007Q3

REPORT INFORMATION
  Report Type: 
  Country: None (occurrence: None)
  Receive Date: 20070820
  Receipt Date: 20070517
  Transmission Date: 20080115
  Serious: No
  Sender: FDA-Public Use
  Company Number: WAES 0705USA03479

PATIENT
  Age: 69 Year
  Sex: Male

DRUGS (8)
  1. JANUVIA [Suspect]
     Dosage: DAILY PO
     Route: 048
     Dates: start: 20070115
  2. ACTOS [Concomitant]
  3. ALDOMET [Concomitant]
  4. CATAPRES [Concomitant]
  5. GLUCOPHAGE [Concomitant]
  6. MONOPRIL [Concomitant]
  7. NORVASC [Concomitant]
  8. TORPROL XL TABLETS [Concomitant]

REACTIONS (2)
  - DIZZINESS [None]
  - HYPOTENSION [None]
